FAERS Safety Report 5936122-3 (Version None)
Quarter: 2008Q4

REPORT INFORMATION
  Report Type: 
  Country: None (occurrence: None)
  Receive Date: 20081030
  Receipt Date: 20081021
  Transmission Date: 20090506
  Serious: Yes (Death, Hospitalization)
  Sender: FDA-Public Use
  Company Number: JP-BAYER-200811230BYL

PATIENT
  Age: 65 Year
  Sex: Male
  Weight: 60 kg

DRUGS (10)
  1. NEXAVAR [Suspect]
     Indication: RENAL CELL CARCINOMA STAGE IV
     Dosage: TOTAL DAILY DOSE: 400 MG  UNIT DOSE: 200 MG
     Route: 048
     Dates: start: 20080501, end: 20080611
  2. WARFARIN SODIUM [Concomitant]
     Dosage: TOTAL DAILY DOSE: 2.5 MG  UNIT DOSE: 0.5 MG
     Route: 048
  3. DIGOSIN [Concomitant]
     Indication: ATRIAL FIBRILLATION
     Dosage: TOTAL DAILY DOSE: 0.15 MG  UNIT DOSE: 0.125 MG
     Route: 048
  4. NEUER [Concomitant]
     Dosage: UNIT DOSE: 200 MG
     Route: 048
  5. GASTER D [Concomitant]
     Dosage: UNIT DOSE: 10 MG
     Route: 048
  6. PRECIPITATED CALCIUM CARBONATE [Concomitant]
     Dosage: TOTAL DAILY DOSE: 3.0 G
     Route: 048
  7. ALFAROL [Concomitant]
     Dosage: TOTAL DAILY DOSE: 0.25 ?G  UNIT DOSE: 0.25 ?G
     Route: 048
  8. ADALAT CC [Concomitant]
     Dosage: TOTAL DAILY DOSE: 20 MG  UNIT DOSE: 10 MG
     Route: 048
     Dates: start: 20080505
  9. NORVASC [Concomitant]
     Route: 048
  10. CARDENALIN [Concomitant]
     Route: 048

REACTIONS (2)
  - PNEUMONIA ASPIRATION [None]
  - SUBARACHNOID HAEMORRHAGE [None]
